FAERS Safety Report 23293070 (Version 1)
Quarter: 2023Q4

REPORT INFORMATION
  Report Type: Spontaneous
  Country: US (occurrence: US)
  Receive Date: 20231213
  Receipt Date: 20231213
  Transmission Date: 20240109
  Serious: Yes (Other)
  Sender: FDA-Public Use
  Company Number: US-PFIZER INC-202300438879

PATIENT
  Age: 71 Year
  Sex: Male
  Weight: 79.83 kg

DRUGS (1)
  1. VYNDAMAX [Suspect]
     Active Substance: TAFAMIDIS
     Dosage: UNK(TAKES A CAPSULES IN THE MORNING)

REACTIONS (2)
  - Anal cancer stage I [Unknown]
  - Prostate cancer [Unknown]

NARRATIVE: CASE EVENT DATE: 20140101
